FAERS Safety Report 12548428 (Version 1)
Quarter: 2016Q3

REPORT INFORMATION
  Report Type: Spontaneous
  Country: US (occurrence: None)
  Receive Date: 20160711
  Receipt Date: 20160711
  Transmission Date: 20161109
  Serious: No
  Sender: FDA-Public Use
  Company Number: None

PATIENT
  Age: 41 Year
  Sex: Male
  Weight: 157 kg

DRUGS (4)
  1. VANCOMYCIN [Suspect]
     Active Substance: VANCOMYCIN
     Indication: MEDICAL DEVICE SITE INFECTION
     Route: 042
     Dates: start: 20130120, end: 20130212
  2. PIPERACILLIN/TAZOBACTAM [Suspect]
     Active Substance: PIPERACILLIN SODIUM\TAZOBACTAM SODIUM
     Indication: CELLULITIS
     Route: 042
     Dates: start: 20130201, end: 20130204
  3. VANCOMYCIN [Suspect]
     Active Substance: VANCOMYCIN
     Indication: CELLULITIS
     Route: 042
     Dates: start: 20130120, end: 20130212
  4. PIPERACILLIN/TAZOBACTAM [Suspect]
     Active Substance: PIPERACILLIN SODIUM\TAZOBACTAM SODIUM
     Indication: MEDICAL DEVICE SITE INFECTION
     Route: 042
     Dates: start: 20130201, end: 20130204

REACTIONS (14)
  - Hypotension [None]
  - Dermatitis exfoliative [None]
  - Drug reaction with eosinophilia and systemic symptoms [None]
  - Diarrhoea [None]
  - Septic shock [None]
  - Acute kidney injury [None]
  - Chills [None]
  - Hepatic enzyme increased [None]
  - Pruritus [None]
  - Blood creatinine increased [None]
  - Device related infection [None]
  - Fatigue [None]
  - Periorbital oedema [None]
  - Urticaria [None]

NARRATIVE: CASE EVENT DATE: 20130211
